FAERS Safety Report 18149697 (Version 1)
Quarter: 2020Q3

REPORT INFORMATION
  Report Type: Report from Study
  Country: KR (occurrence: KR)
  Receive Date: 20200814
  Receipt Date: 20200814
  Transmission Date: 20201103
  Serious: Yes (Other)
  Sender: FDA-Public Use
  Company Number: KR-B.I. PHARMACEUTICALS,INC./RIDGEFIELD-2020-BI-041148

PATIENT
  Age: 55 Year
  Sex: Male

DRUGS (2)
  1. GILOTRIF [Suspect]
     Active Substance: AFATINIB
     Indication: OESOPHAGEAL SQUAMOUS CELL CARCINOMA METASTATIC
  2. GILOTRIF [Suspect]
     Active Substance: AFATINIB
     Indication: OESOPHAGEAL SQUAMOUS CELL CARCINOMA RECURRENT
     Route: 065

REACTIONS (1)
  - Malignant neoplasm progression [Unknown]
